FAERS Safety Report 9790788 (Version 1)
Quarter: 2013Q4

REPORT INFORMATION
  Report Type: Spontaneous
  Country: CH (occurrence: CH)
  Receive Date: 20131231
  Receipt Date: 20131231
  Transmission Date: 20140711
  Serious: Yes (Hospitalization)
  Sender: FDA-Public Use
  Company Number: PHHY2013CH151491

PATIENT
  Age: 76 Year
  Sex: Female

DRUGS (14)
  1. VALSARTAN [Suspect]
     Dosage: 80 MG, PER DAY
  2. LITHIUM [Interacting]
     Indication: BIPOLAR DISORDER
     Dosage: 330 MG,DAILY DOSE
     Dates: end: 2007
  3. LITHIUM [Interacting]
     Dosage: 660 MG, PER DAY
  4. LITHIUM [Interacting]
     Dosage: 300 MG, BID (TAKEN AT 8:00 A.M. AND 6:00 P.M.)
  5. VALPROATE [Concomitant]
  6. SITAGLIPTIN [Concomitant]
     Dosage: 100 MG, PER DAY
  7. METFORMIN [Concomitant]
     Dosage: 1000 MG, BID
  8. ASPIRIN [Concomitant]
     Dosage: 100 MG, DAY
  9. OLANZAPINE [Concomitant]
     Dosage: 2.5 MG, QD, SINGLE DAILY DOSE
  10. OLANZAPINE [Concomitant]
     Dosage: 12.5 MG, QD, SINGLE DAILY DOSE
  11. LORAZEPAM [Concomitant]
     Dosage: 1 MG, BID
  12. LORAZEPAM [Concomitant]
     Dosage: 2 MG, PRN
  13. ZOLPIDEM [Concomitant]
     Dosage: 10 MG, QD.SINGLE DAILY DOSE.
  14. FLURAZEPAM [Concomitant]
     Dosage: 30 MG, SEVEN DAYS PRIOR TO LITHIUM TOXICITY

REACTIONS (11)
  - Toxicity to various agents [Recovering/Resolving]
  - Mania [Recovering/Resolving]
  - Delusion [Recovering/Resolving]
  - Abnormal behaviour [Recovering/Resolving]
  - Confusional state [Recovering/Resolving]
  - Extrapyramidal disorder [Recovering/Resolving]
  - Mental disorder [Recovering/Resolving]
  - Drug level increased [Recovering/Resolving]
  - Anaemia [Unknown]
  - CSF glucose increased [Unknown]
  - Drug interaction [Recovering/Resolving]
